FAERS Safety Report 23878665 (Version 1)
Quarter: 2024Q2

REPORT INFORMATION
  Report Type: Spontaneous
  Country: US (occurrence: None)
  Receive Date: 20240520
  Receipt Date: 20240520
  Transmission Date: 20240716
  Serious: Yes (Other)
  Sender: FDA-Public Use
  Company Number: None

PATIENT
  Age: 50 Year
  Sex: Male

DRUGS (1)
  1. ILARIS [Suspect]
     Active Substance: CANAKINUMAB
     Indication: Hyper IgE syndrome
     Dosage: 300MG  EVERY 28 DAYS ?

REACTIONS (6)
  - Rash [None]
  - Rash [None]
  - Arthralgia [None]
  - Myalgia [None]
  - Fatigue [None]
  - Therapy cessation [None]
